FAERS Safety Report 7888368-5 (Version None)
Quarter: 2011Q4

REPORT INFORMATION
  Report Type: 
  Country: None (occurrence: None)
  Receive Date: 20111103
  Receipt Date: 20111101
  Transmission Date: 20120403
  Serious: Yes (Other)
  Sender: FDA-Public Use
  Company Number: US-PFIZER INC-2010105049

PATIENT
  Sex: Female

DRUGS (1)
  1. CHANTIX [Suspect]
     Indication: SMOKING CESSATION THERAPY

REACTIONS (6)
  - WITHDRAWAL SYNDROME [None]
  - DEPRESSED MOOD [None]
  - GALLBLADDER OPERATION [None]
  - PERSONALITY CHANGE [None]
  - LOWER LIMB FRACTURE [None]
  - HOSTILITY [None]
